FAERS Safety Report 6304916-0 (Version None)
Quarter: 2009Q3

REPORT INFORMATION
  Report Type: 
  Country: None (occurrence: None)
  Receive Date: 20090806
  Receipt Date: 20090727
  Transmission Date: 20100115
  Serious: Yes (Other)
  Sender: FDA-Public Use
  Company Number: 2009AP003066

PATIENT
  Age: 86 Year
  Sex: Male

DRUGS (7)
  1. OMEPRAZOLE [Suspect]
     Indication: DYSPEPSIA
     Dosage: 20 MG; PO
     Route: 048
     Dates: start: 20090505, end: 20090514
  2. AMLODIPINE (AMLODIPINE) [Concomitant]
  3. ASPIRIN [Concomitant]
  4. CODEINE PHOSPHATE (CODEINE PHOSPHATE) [Concomitant]
  5. PARACETAMOL (PARACETAMOL) [Concomitant]
  6. HYDROXOCOBALAMIN (HYDROXOCOBALAMIN) [Concomitant]
  7. RAMIPRIL [Concomitant]

REACTIONS (2)
  - LIP SWELLING [None]
  - SWELLING FACE [None]
